FAERS Safety Report 9234558 (Version 4)
Quarter: 2014Q3

REPORT INFORMATION
  Report Type: Spontaneous
  Country: US (occurrence: US)
  Receive Date: 20130416
  Receipt Date: 20140729
  Transmission Date: 20150326
  Serious: Yes (Hospitalization, Disabling, Other)
  Sender: FDA-Public Use
  Company Number: US-009507513-1304USA005246

PATIENT
  Sex: Female
  Weight: 58.96 kg

DRUGS (2)
  1. NUVARING [Suspect]
     Active Substance: ETHINYL ESTRADIOL\ETONOGESTREL
     Indication: CONTRACEPTION
     Dosage: UNK
     Route: 067
     Dates: start: 20080315
  2. NUVARING [Suspect]
     Active Substance: ETHINYL ESTRADIOL\ETONOGESTREL
     Indication: MENSTRUATION IRREGULAR
     Dosage: UNK
     Route: 067
     Dates: start: 201003, end: 20100506

REACTIONS (30)
  - Tricuspid valve incompetence [Unknown]
  - Tachycardia [Unknown]
  - Normochromic normocytic anaemia [Recovering/Resolving]
  - Anxiety [Unknown]
  - Migraine [Unknown]
  - Road traffic accident [Unknown]
  - Bulimia nervosa [Unknown]
  - Pain [Unknown]
  - Intervertebral disc protrusion [Unknown]
  - Fatigue [Unknown]
  - Overdose [Unknown]
  - Vomiting [Recovered/Resolved]
  - Premenstrual syndrome [Recovering/Resolving]
  - Muscle spasms [Unknown]
  - Oedema peripheral [Unknown]
  - Intervertebral disc operation [Unknown]
  - Pulmonary embolism [Recovered/Resolved]
  - Hypotension [Recovering/Resolving]
  - Mitral valve incompetence [Unknown]
  - Depression [Unknown]
  - Chest pain [Not Recovered/Not Resolved]
  - Suicide attempt [Unknown]
  - Nausea [Recovered/Resolved]
  - Sinus tachycardia [Not Recovered/Not Resolved]
  - Palpitations [Unknown]
  - Decreased appetite [Unknown]
  - Off label use [Unknown]
  - Dyspnoea exertional [Unknown]
  - Depression [Unknown]
  - Intentional overdose [Unknown]

NARRATIVE: CASE EVENT DATE: 2008
